FAERS Safety Report 7084450-3 (Version None)
Quarter: 2010Q4

REPORT INFORMATION
  Report Type: 
  Country: None (occurrence: None)
  Receive Date: 20101104
  Receipt Date: 20101101
  Transmission Date: 20110411
  Serious: No
  Sender: FDA-Public Use
  Company Number: US-PFIZER INC-2010131521

PATIENT
  Sex: Female
  Weight: 90.703 kg

DRUGS (6)
  1. PROVERA [Suspect]
     Indication: MENSTRUAL DISCOMFORT
     Dosage: 10 MG, DAILY
     Route: 048
     Dates: start: 20100201, end: 20101010
  2. PROVERA [Suspect]
     Indication: DYSFUNCTIONAL UTERINE BLEEDING
  3. HYDROCHLOROTHIAZIDE [Concomitant]
     Indication: HYPERTENSION
     Dosage: UNK, DAILY
     Dates: start: 20070101
  4. METHOTREXATE [Concomitant]
     Indication: RHEUMATOID ARTHRITIS
     Dosage: UNK, WEEKLY
     Dates: start: 19990101
  5. ARAVA [Concomitant]
     Indication: RHEUMATOID ARTHRITIS
     Dosage: UNK, DAILY
     Route: 048
     Dates: start: 20060101
  6. FOLIC ACID [Concomitant]
     Indication: RHEUMATOID ARTHRITIS
     Dosage: UNK, DAILY
     Route: 048
     Dates: start: 19990101

REACTIONS (2)
  - BREAST TENDERNESS [None]
  - DRUG INEFFECTIVE [None]
